FAERS Safety Report 6330489-2 (Version None)
Quarter: 2009Q3

REPORT INFORMATION
  Report Type: 
  Country: None (occurrence: None)
  Receive Date: 20090827
  Receipt Date: 20090123
  Transmission Date: 20100115
  Serious: No
  Sender: FDA-Public Use
  Company Number: A0761364A

PATIENT
  Age: 66 Year
  Sex: Female
  Weight: 80.7 kg

DRUGS (5)
  1. ZOVIRAX [Suspect]
     Indication: BLISTER
     Route: 061
     Dates: start: 20081214
  2. XANAX [Concomitant]
     Dosage: .5MGD PER DAY
     Route: 048
  3. ZOCOR [Concomitant]
     Dosage: 40MGD PER DAY
     Route: 048
  4. LISINOPRIL [Concomitant]
     Dosage: 5MGD PER DAY
     Route: 048
  5. CITALOPRAM HYDROBROMIDE [Concomitant]
     Dosage: 20MGD PER DAY
     Route: 048

REACTIONS (5)
  - CHEILITIS [None]
  - LIP SWELLING [None]
  - OFF LABEL USE [None]
  - ORAL HERPES [None]
  - PRODUCT QUALITY ISSUE [None]
